FAERS Safety Report 13349303 (Version 1)
Quarter: 2017Q1

REPORT INFORMATION
  Report Type: Spontaneous
  Country: US (occurrence: US)
  Receive Date: 20170320
  Receipt Date: 20170320
  Transmission Date: 20170428
  Serious: No
  Sender: FDA-Public Use
  Company Number: US-TEVA-743526USA

PATIENT
  Sex: Female

DRUGS (2)
  1. HYDROXYZINE [Suspect]
     Active Substance: HYDROXYZINE HYDROCHLORIDE
     Indication: HYPERSENSITIVITY
     Dosage: 2 CAPSULES AT NIGHT
     Route: 065
     Dates: start: 1997
  2. HYDROXYZINE [Suspect]
     Active Substance: HYDROXYZINE HYDROCHLORIDE
     Indication: PRURITUS

REACTIONS (6)
  - Product physical issue [Unknown]
  - Lip swelling [Unknown]
  - Pruritus [Unknown]
  - Peripheral swelling [Unknown]
  - Drug ineffective [Unknown]
  - Malaise [Unknown]
